FAERS Safety Report 9726850 (Version 2)
Quarter: 2014Q1

REPORT INFORMATION
  Report Type: Spontaneous
  Country: US (occurrence: US)
  Receive Date: 20131203
  Receipt Date: 20140123
  Transmission Date: 20141002
  Serious: No
  Sender: FDA-Public Use
  Company Number: US-PFIZER INC-2013341451

PATIENT
  Sex: Female

DRUGS (1)
  1. ADVIL [Suspect]
     Indication: MIGRAINE
     Dosage: UNK

REACTIONS (3)
  - Poor quality drug administered [Unknown]
  - Throat irritation [Unknown]
  - Product physical issue [Unknown]
